FAERS Safety Report 15815048 (Version 1)
Quarter: 2019Q1

REPORT INFORMATION
  Report Type: Spontaneous
  Country: SE (occurrence: SE)
  Receive Date: 20190112
  Receipt Date: 20190112
  Transmission Date: 20190417
  Serious: Yes (Other)
  Sender: FDA-Public Use
  Company Number: SE-TEVA-2019-SE-997845

PATIENT
  Age: 46 Year
  Sex: Female

DRUGS (7)
  1. PYRIDOXINE [Concomitant]
     Active Substance: PYRIDOXINE
     Dosage: 40 MILLIGRAM DAILY;
     Route: 065
  2. IPREN [Concomitant]
     Active Substance: IBUPROFEN
     Dosage: 800 MILLIGRAM DAILY;
     Route: 065
     Dates: start: 201809
  3. LEVOFLOXACIN. [Suspect]
     Active Substance: LEVOFLOXACIN
     Dosage: 750 MILLIGRAM DAILY;
     Route: 065
     Dates: start: 20181031, end: 20181114
  4. RIMACTAN 300 MG KAPSEL, H?RD [Concomitant]
     Dosage: 600 MILLIGRAM DAILY;
     Dates: start: 20181031
  5. TIBINIDE 300 MG TABLETT [Concomitant]
     Dosage: 300 MILLIGRAM DAILY;
     Route: 065
     Dates: start: 20181031
  6. ALVEDON [Concomitant]
     Active Substance: ACETAMINOPHEN
     Dosage: 2000 MILLIGRAM DAILY;
     Route: 065
  7. OXYNORM [Concomitant]
     Active Substance: OXYCODONE HYDROCHLORIDE
     Dosage: 10 MILLIGRAM DAILY;
     Route: 065

REACTIONS (5)
  - Tendon pain [Unknown]
  - Peripheral swelling [Unknown]
  - Myalgia [Unknown]
  - Paraesthesia [Unknown]
  - Arthralgia [Unknown]

NARRATIVE: CASE EVENT DATE: 201811
